FAERS Safety Report 10548534 (Version 2)
Quarter: 2014Q4

REPORT INFORMATION
  Report Type: Spontaneous
  Country: US (occurrence: US)
  Receive Date: 20141028
  Receipt Date: 20141209
  Transmission Date: 20150529
  Serious: Yes (Other)
  Sender: FDA-Public Use
  Company Number: US-BAYER-2014-156258

PATIENT
  Age: 26 Year
  Sex: Female
  Weight: 51.7 kg

DRUGS (1)
  1. SKYLA [Suspect]
     Active Substance: LEVONORGESTREL
     Indication: CONTRACEPTION
     Dosage: 14 MCG/24HR, CONT
     Route: 015
     Dates: start: 20140128, end: 20140328

REACTIONS (1)
  - Pelvic inflammatory disease [None]

NARRATIVE: CASE EVENT DATE: 201403
